FAERS Safety Report 10402193 (Version 1)
Quarter: 2014Q3

REPORT INFORMATION
  Report Type: Spontaneous
  Country: US (occurrence: None)
  Receive Date: 20140820
  Receipt Date: 20140820
  Transmission Date: 20150326
  Serious: Yes (Other)
  Sender: FDA-Public Use
  Company Number: None

PATIENT
  Age: 57 Year
  Sex: Male

DRUGS (3)
  1. PEGINTRON [Suspect]
     Active Substance: PEGINTERFERON ALFA-2B
     Indication: HEPATITIS C
     Route: 058
     Dates: start: 20140509, end: 20140611
  2. RIBAVIRIN. [Concomitant]
     Active Substance: RIBAVIRIN
  3. SOVALDI [Concomitant]
     Active Substance: SOFOSBUVIR

REACTIONS (3)
  - Visual impairment [None]
  - Retinal exudates [None]
  - Photophobia [None]

NARRATIVE: CASE EVENT DATE: 20140611
